FAERS Safety Report 7348852-X (Version None)
Quarter: 2011Q1

REPORT INFORMATION
  Report Type: 
  Country: None (occurrence: None)
  Receive Date: 20110314
  Receipt Date: 20110301
  Transmission Date: 20110831
  Serious: Yes (Other)
  Sender: FDA-Public Use
  Company Number: US-ABBOTT-10P-163-0675286-00

PATIENT
  Sex: Female
  Weight: 118.04 kg

DRUGS (7)
  1. HUMIRA [Suspect]
     Indication: PSORIASIS
     Route: 058
     Dates: start: 20090728, end: 20100623
  2. PRENATAL VITAMINS [Concomitant]
     Indication: PRODUCT USED FOR UNKNOWN INDICATION
     Dosage: PILL
     Route: 048
     Dates: start: 20100705
  3. CLOBEX [Concomitant]
     Indication: PSORIASIS
     Dosage: 0.05% SPRAY
     Dates: start: 20081007
  4. CLOBETASOL PROPIONATE [Concomitant]
     Indication: PSORIASIS
     Dosage: 0.05%
     Dates: start: 20080402
  5. TACLONEX [Concomitant]
     Indication: PSORIASIS
     Dosage: 0.005% AND 0.064%
     Dates: start: 20080417
  6. SALICYLIC ACID [Concomitant]
     Indication: PSORIASIS
     Dosage: 6%
     Dates: start: 20080401
  7. IRON [Concomitant]
     Indication: PRODUCT USED FOR UNKNOWN INDICATION
     Dosage: PILL
     Route: 048
     Dates: start: 20100705

REACTIONS (1)
  - ABORTION SPONTANEOUS [None]
